FAERS Safety Report 7834074-2 (Version None)
Quarter: 2011Q4

REPORT INFORMATION
  Report Type: 
  Country: None (occurrence: None)
  Receive Date: 20111024
  Receipt Date: 20111024
  Transmission Date: 20120403
  Serious: Yes (Other)
  Sender: FDA-Public Use
  Company Number: None

PATIENT
  Sex: Female
  Weight: 90.7 kg

DRUGS (1)
  1. CLARAVIS [Suspect]
     Dosage: 40MG
     Route: 048
     Dates: start: 20110920, end: 20111021

REACTIONS (3)
  - ECTOPIC PREGNANCY [None]
  - PREGNANCY TEST POSITIVE [None]
  - PELVIC PAIN [None]
